FAERS Safety Report 5016907-0 (Version None)
Quarter: 2006Q2

REPORT INFORMATION
  Report Type: 
  Country: None (occurrence: None)
  Receive Date: 20060526
  Receipt Date: 20060515
  Transmission Date: 20061013
  Serious: Yes (Life-Threatening, Hospitalization, Other)
  Sender: FDA-Public Use
  Company Number: 2006US-02313

PATIENT
  Sex: Male

DRUGS (3)
  1. ZIDOVUDINE [Suspect]
     Dosage: INTRA-UTERINE
     Route: 015
  2. LAMIVUDINE [Suspect]
     Dosage: INTRA-UTERINE
     Route: 015
  3. NEVIRAPINE [Suspect]
     Dosage: INTRA-UTERINE
     Route: 015

REACTIONS (13)
  - AGRANULOCYTOSIS [None]
  - CAESAREAN SECTION [None]
  - DRUG EXPOSURE DURING PREGNANCY [None]
  - ENTEROCOLITIS [None]
  - FLOPPY INFANT [None]
  - GASTROINTESTINAL NECROSIS [None]
  - HAEMATOCHEZIA [None]
  - INTESTINAL PERFORATION [None]
  - NEONATAL DISORDER [None]
  - PALLOR [None]
  - PNEUMATOSIS INTESTINALIS [None]
  - PNEUMOPERITONEUM [None]
  - SEPSIS NEONATAL [None]
